FAERS Safety Report 4460040-3 (Version None)
Quarter: 2004Q3

REPORT INFORMATION
  Report Type: 
  Country: None (occurrence: None)
  Receive Date: 20040928
  Receipt Date: 20030930
  Transmission Date: 20050211
  Serious: No
  Sender: FDA-Public Use
  Company Number: US-GLAXOSMITHKLINE-A0428072A

PATIENT
  Sex: Female

DRUGS (6)
  1. SEREVENT [Suspect]
     Indication: ASTHMA
     Dosage: 1PUFF TWICE PER DAY
     Route: 055
     Dates: start: 20030701, end: 20030901
  2. FLOVENT [Concomitant]
     Route: 055
  3. VENTOLIN MDI [Concomitant]
  4. VIOXX [Concomitant]
  5. TYLENOL [Concomitant]
  6. PEPCID AC [Concomitant]

REACTIONS (3)
  - COUGH [None]
  - DRUG INEFFECTIVE [None]
  - PRODUCTIVE COUGH [None]
